FAERS Safety Report 4954271-3 (Version None)
Quarter: 2006Q1

REPORT INFORMATION
  Report Type: 
  Country: None (occurrence: None)
  Receive Date: 20060327
  Receipt Date: 20060315
  Transmission Date: 20060701
  Serious: Yes (Hospitalization)
  Sender: FDA-Public Use
  Company Number: JP-BRISTOL-MYERS SQUIBB COMPANY-13322474

PATIENT
  Age: 78 Year
  Sex: Male

DRUGS (4)
  1. MEVALOTIN [Suspect]
     Indication: HYPERLIPIDAEMIA
     Route: 048
  2. TANATRIL [Concomitant]
     Indication: HYPERTENSION
     Route: 048
  3. MICARDIS [Concomitant]
     Indication: DIABETES MELLITUS
     Route: 048
  4. BASEN [Concomitant]
     Indication: DIABETES MELLITUS
     Route: 048

REACTIONS (1)
  - SYSTEMIC LUPUS ERYTHEMATOSUS [None]
